FAERS Safety Report 19203967 (Version 1)
Quarter: 2021Q2

REPORT INFORMATION
  Report Type: Spontaneous
  Country: CN (occurrence: CN)
  Receive Date: 20210503
  Receipt Date: 20210503
  Transmission Date: 20210717
  Serious: Yes (Hospitalization)
  Sender: FDA-Public Use
  Company Number: CN-ROCHE-2819422

PATIENT
  Age: 57 Year
  Sex: Female

DRUGS (3)
  1. CARBOPLATIN. [Suspect]
     Active Substance: CARBOPLATIN
     Indication: MALIGNANT MELANOMA
     Dosage: FOR DAY1
     Route: 041
     Dates: start: 20210401, end: 20210419
  2. AVASTIN [Suspect]
     Active Substance: BEVACIZUMAB
     Indication: MALIGNANT MELANOMA
     Dosage: FOR DAY1
     Route: 041
     Dates: start: 20210401, end: 20210419
  3. ALBUMIN?BOUND TAXOL [Concomitant]
     Indication: MALIGNANT MELANOMA
     Dosage: FOR DAY1
     Dates: start: 20210401

REACTIONS (3)
  - Vulvovaginal pruritus [Recovering/Resolving]
  - Off label use [Unknown]
  - Myelosuppression [Recovering/Resolving]

NARRATIVE: CASE EVENT DATE: 20210419
